FAERS Safety Report 7360290-2 (Version None)
Quarter: 2011Q1

REPORT INFORMATION
  Report Type: 
  Country: None (occurrence: None)
  Receive Date: 20110318
  Receipt Date: 20110310
  Transmission Date: 20110831
  Serious: Yes (Hospitalization)
  Sender: FDA-Public Use
  Company Number: SE-NOVOPROD-313736

PATIENT
  Age: 65 Year
  Sex: Male
  Weight: 115 kg

DRUGS (5)
  1. VICTOZA [Suspect]
     Dosage: 1.2 MG, QD
     Route: 058
     Dates: start: 20100620, end: 20100801
  2. VICTOZA [Suspect]
     Indication: TYPE 2 DIABETES MELLITUS
     Dosage: 0.6 MG, QD
     Route: 058
     Dates: start: 20100610, end: 20100620
  3. VICTOZA [Suspect]
     Dosage: UNK
     Dates: start: 20100901
  4. METFORMIN HCL [Concomitant]
     Indication: TYPE 2 DIABETES MELLITUS
     Dosage: 1+1+0
     Dates: start: 20080101
  5. NOVORAPID [Concomitant]
     Indication: TYPE 2 DIABETES MELLITUS
     Dosage: 60 U, QD
     Dates: start: 20050101

REACTIONS (1)
  - ARRHYTHMIA [None]
